FAERS Safety Report 17956880 (Version 1)
Quarter: 2020Q2

REPORT INFORMATION
  Report Type: Spontaneous
  Country: US (occurrence: US)
  Receive Date: 20200629
  Receipt Date: 20200629
  Transmission Date: 20200714
  Serious: No
  Sender: FDA-Public Use
  Company Number: None

PATIENT
  Age: 16 Year
  Sex: Male

DRUGS (8)
  1. XYZAL [Concomitant]
     Active Substance: LEVOCETIRIZINE DIHYDROCHLORIDE
  2. TRIKAFTA [Suspect]
     Active Substance: ELEXACAFTOR\IVACAFTOR\TEZACAFTOR
     Indication: CYSTIC FIBROSIS
     Route: 048
  3. QVAR 40MCG MDI [Concomitant]
  4. TOPAMAX [Concomitant]
     Active Substance: TOPIRAMATE
  5. FLONASE NS [Concomitant]
  6. AZITHROMYCIN 250MG [Concomitant]
     Active Substance: AZITHROMYCIN ANHYDROUS
  7. LEXAPRO 5MG [Concomitant]
  8. HYPERSAL 7% [Concomitant]

REACTIONS (3)
  - Extra dose administered [None]
  - Rhinorrhoea [None]
  - Sinus congestion [None]

NARRATIVE: CASE EVENT DATE: 20200601
